FAERS Safety Report 5835811-9 (Version None)
Quarter: 2008Q3

REPORT INFORMATION
  Report Type: 
  Country: None (occurrence: None)
  Receive Date: 20080806
  Receipt Date: 20080805
  Transmission Date: 20090109
  Serious: Yes (Death)
  Sender: FDA-Public Use
  Company Number: US-BOEHRINGER INGELHEIM GMBH, GERMANY-2008-BP-12262BP

PATIENT
  Sex: Female
  Weight: 59 kg

DRUGS (6)
  1. AGGRENOX [Suspect]
     Indication: THROMBOSIS
     Route: 048
     Dates: start: 20080627, end: 20080629
  2. PLAVIX [Suspect]
     Indication: THROMBOSIS
     Route: 048
     Dates: start: 20080612, end: 20080621
  3. PLAVIX [Suspect]
     Indication: RASH MACULAR
  4. MEGESTROL ACETATE [Concomitant]
     Route: 048
     Dates: end: 20080621
  5. BUSPIRONE HCL [Concomitant]
     Route: 048
     Dates: end: 20080621
  6. BLOOD PRESSURE MEDICATION [Concomitant]
     Route: 048
     Dates: end: 20080621

REACTIONS (3)
  - CONTUSION [None]
  - DEATH [None]
  - DYSPNOEA [None]
